FAERS Safety Report 25036100 (Version 1)
Quarter: 2025Q1

REPORT INFORMATION
  Report Type: Report from Study
  Country: US (occurrence: US)
  Receive Date: 20250304
  Receipt Date: 20250304
  Transmission Date: 20250409
  Serious: Yes (Death)
  Sender: INSMED
  Company Number: US-INSMED, INC.-2024-00881-US

PATIENT
  Sex: Male

DRUGS (6)
  1. ARIKAYCE [Suspect]
     Active Substance: AMIKACIN
     Indication: Mycobacterium avium complex infection
     Dosage: 590 MILLIGRAM, QD
     Route: 055
     Dates: start: 20240226, end: 2024
  2. ARIKAYCE [Suspect]
     Active Substance: AMIKACIN
     Dosage: 590 MILLIGRAM, QOD
     Route: 055
     Dates: start: 2024, end: 2024
  3. ARIKAYCE [Suspect]
     Active Substance: AMIKACIN
     Route: 055
     Dates: start: 2024, end: 2024
  4. ARIKAYCE [Suspect]
     Active Substance: AMIKACIN
     Dosage: 590 MILLIGRAM, TIW
     Route: 055
     Dates: start: 2024, end: 2024
  5. ARIKAYCE [Suspect]
     Active Substance: AMIKACIN
     Dosage: 590 MILLIGRAM, QOD (FOUR TIMES A WEEK)
     Route: 055
     Dates: start: 2024, end: 2024
  6. ARIKAYCE [Suspect]
     Active Substance: AMIKACIN
     Route: 055
     Dates: start: 2024

REACTIONS (8)
  - Death [Fatal]
  - Aphonia [Recovered/Resolved]
  - Unevaluable event [Unknown]
  - Dysphonia [Not Recovered/Not Resolved]
  - Ill-defined disorder [Unknown]
  - Intentional dose omission [Unknown]
  - Device physical property issue [Unknown]
  - Drug dose omission by device [Unknown]

NARRATIVE: CASE EVENT DATE: 20240101
